FAERS Safety Report 15814311 (Version 2)
Quarter: 2019Q2

REPORT INFORMATION
  Report Type: Spontaneous
  Country: CA (occurrence: CA)
  Receive Date: 20190111
  Receipt Date: 20190619
  Transmission Date: 20190711
  Serious: Yes (Other)
  Sender: FDA-Public Use
  Company Number: CA-PFIZER INC-2014228100

PATIENT
  Age: 32 Year

DRUGS (5)
  1. FENTANYL. [Suspect]
     Active Substance: FENTANYL
     Dosage: 50 UG ONCE
     Route: 042
  2. BUPIVACAINE. [Suspect]
     Active Substance: BUPIVACAINE
     Dosage: UNK
  3. EPINEPHRINE. [Suspect]
     Active Substance: EPINEPHRINE
     Dosage: UNK
  4. LIDOCAINE. [Suspect]
     Active Substance: LIDOCAINE
     Dosage: UNK
  5. PROPOFOL INJECTION [Concomitant]
     Active Substance: PROPOFOL

REACTIONS (2)
  - Bradycardia [Unknown]
  - Hypotension [Unknown]
